FAERS Safety Report 10109595 (Version 2)
Quarter: 2014Q4

REPORT INFORMATION
  Report Type: Other
  Country: US (occurrence: US)
  Receive Date: 20140425
  Receipt Date: 20141205
  Transmission Date: 20150528
  Serious: Yes (Hospitalization, Other)
  Sender: FDA-Public Use
  Company Number: US-GSKPPD-2014GSK007576

PATIENT
  Age: 61 Year
  Sex: Female

DRUGS (7)
  1. AMIODARONE [Concomitant]
     Active Substance: AMIODARONE
     Dosage: 400MG (2 WEEKS); 200MG
  2. ASPIRIN. [Concomitant]
     Active Substance: ASPIRIN
  3. AVANDIA [Suspect]
     Active Substance: ROSIGLITAZONE MALEATE
     Indication: DIABETES MELLITUS
     Dosage: DATES OF AVANDIA USE COULD NOT BE CONFIRMED IN RECORDS REVIEWED
     Route: 048
  4. METOPROLOL TARTRATE. [Concomitant]
     Active Substance: METOPROLOL TARTRATE
  5. FUROSEMIDE. [Concomitant]
     Active Substance: FUROSEMIDE
  6. LISINOPRIL. [Concomitant]
     Active Substance: LISINOPRIL
  7. CLOPIDOGREL [Concomitant]
     Active Substance: CLOPIDOGREL BISULFATE

REACTIONS (2)
  - Myocardial infarction [Unknown]
  - Coronary artery disease [Unknown]

NARRATIVE: CASE EVENT DATE: 20051107
